FAERS Safety Report 18605221 (Version 2)
Quarter: 2020Q4

REPORT INFORMATION
  Report Type: Spontaneous
  Country: CA (occurrence: CA)
  Receive Date: 20201211
  Receipt Date: 20201222
  Transmission Date: 20210114
  Serious: Yes (Hospitalization)
  Sender: FDA-Public Use
  Company Number: CA-JNJFOC-20201210876

PATIENT
  Age: 55 Year
  Sex: Female

DRUGS (6)
  1. TOPAMAX [Suspect]
     Active Substance: TOPIRAMATE
     Indication: MIGRAINE
     Route: 048
  2. ELAVIL [Suspect]
     Active Substance: AMITRIPTYLINE HYDROCHLORIDE
     Indication: PRODUCT USED FOR UNKNOWN INDICATION
     Route: 048
  3. PROPRANOLOL [Suspect]
     Active Substance: PROPRANOLOL HYDROCHLORIDE
     Indication: MIGRAINE
     Route: 065
  4. TOPAMAX [Suspect]
     Active Substance: TOPIRAMATE
     Route: 048
  5. CANDESARTAN. [Suspect]
     Active Substance: CANDESARTAN
     Indication: MIGRAINE
  6. SUMATRIPTAN. [Concomitant]
     Active Substance: SUMATRIPTAN
     Indication: MIGRAINE
     Route: 058

REACTIONS (13)
  - Neurological symptom [Unknown]
  - Dizziness [Unknown]
  - Dry mouth [Unknown]
  - Headache [Unknown]
  - Poor quality sleep [Unknown]
  - Drug ineffective [Unknown]
  - Flushing [Unknown]
  - Migraine with aura [Unknown]
  - Drug intolerance [Unknown]
  - Dermatitis contact [Unknown]
  - Perfume sensitivity [Unknown]
  - Paraesthesia oral [Unknown]
  - Hypoaesthesia [Unknown]
